FAERS Safety Report 20461282 (Version 3)
Quarter: 2022Q2

REPORT INFORMATION
  Report Type: Report from Study
  Country: US (occurrence: US)
  Receive Date: 20220211
  Receipt Date: 20220526
  Transmission Date: 20220721
  Serious: Yes (Hospitalization, Other)
  Sender: FDA-Public Use
  Company Number: US-PFIZER INC-202101741401

PATIENT
  Age: 77 Year
  Sex: Female

DRUGS (3)
  1. IBRANCE [Suspect]
     Active Substance: PALBOCICLIB
     Indication: Breast cancer metastatic
     Dosage: 125 MG, CYCLIC (ONE TABLET DAILY FOR 21 DAYS ON, 7 OFF)
     Route: 048
     Dates: start: 20211124, end: 20220124
  2. IBRANCE [Suspect]
     Active Substance: PALBOCICLIB
     Dosage: 125 MG, CYCLIC (DAILY FOR 21 DAYS ON, 7 OFF)
     Route: 048
     Dates: end: 20220430
  3. FULVESTRANT [Concomitant]
     Active Substance: FULVESTRANT
     Dosage: UNK

REACTIONS (29)
  - Liver disorder [Unknown]
  - Ammonia increased [Unknown]
  - Dementia [Not Recovered/Not Resolved]
  - Pulmonary thrombosis [Not Recovered/Not Resolved]
  - Hepatic cirrhosis [Unknown]
  - Neoplasm progression [Unknown]
  - Fluid retention [Unknown]
  - Neoplasm progression [Not Recovered/Not Resolved]
  - White blood cell count decreased [Recovered/Resolved]
  - Alopecia [Unknown]
  - Epistaxis [Unknown]
  - Joint swelling [Unknown]
  - Pleural effusion [Not Recovered/Not Resolved]
  - Dyspnoea [Not Recovered/Not Resolved]
  - Decreased appetite [Not Recovered/Not Resolved]
  - Somnolence [Unknown]
  - Oedema peripheral [Unknown]
  - Fatigue [Unknown]
  - Pyrexia [Recovered/Resolved]
  - Rhinorrhoea [Recovered/Resolved]
  - Amnesia [Not Recovered/Not Resolved]
  - COVID-19 [Unknown]
  - Increased appetite [Unknown]
  - Contusion [Not Recovered/Not Resolved]
  - Appetite disorder [Unknown]
  - Drug hypersensitivity [Unknown]
  - Therapy interrupted [Unknown]
  - Therapeutic response unexpected [Unknown]
  - Product dose omission issue [Unknown]

NARRATIVE: CASE EVENT DATE: 20210101
